FAERS Safety Report 7054798-7 (Version None)
Quarter: 2010Q4

REPORT INFORMATION
  Report Type: 
  Country: None (occurrence: None)
  Receive Date: 20101021
  Receipt Date: 20101006
  Transmission Date: 20110411
  Serious: Yes (Life-Threatening, Hospitalization, Other)
  Sender: FDA-Public Use
  Company Number: BE-AMGEN BELGIUM S.A/N.V.-KDL439639

PATIENT

DRUGS (11)
  1. NEULASTA [Suspect]
     Indication: CHEMOTHERAPY
     Dosage: UNK UNK, Q2WK
     Route: 058
     Dates: start: 20100522, end: 20100703
  2. BLEOMYCIN SULFATE [Suspect]
     Dosage: UNK UNK, Q2WK
     Route: 042
     Dates: start: 20100517, end: 20100702
  3. RITUXIMAB [Concomitant]
     Dosage: UNK UNK, Q2WK
     Route: 042
     Dates: start: 20100517, end: 20100702
  4. DOXORUBICIN HYDROCHLORIDE [Concomitant]
     Dosage: UNK UNK, Q2WK
     Route: 042
     Dates: start: 20100517, end: 20100702
  5. CYCLOPHOSPHAMIDE [Concomitant]
     Dosage: UNK UNK, Q2WK
     Route: 042
     Dates: start: 20100517, end: 20100702
  6. VINDESINE [Concomitant]
     Dosage: UNK UNK, Q2WK
     Route: 042
     Dates: start: 20100517, end: 20100702
  7. PREDNISONE TAB [Concomitant]
     Dosage: UNK UNK, Q2WK
     Route: 042
     Dates: start: 20100517, end: 20100702
  8. METHOTREXATE [Concomitant]
  9. ACICLOVIR [Concomitant]
     Dosage: 400 MG, BID
  10. COMBIVENT [Concomitant]
  11. ACETYLCYSTEINE [Concomitant]

REACTIONS (5)
  - ASTHMA [None]
  - CULTURE POSITIVE [None]
  - INTERSTITIAL LUNG DISEASE [None]
  - NEUTROPHIL COUNT INCREASED [None]
  - TOOTH ABSCESS [None]
